FAERS Safety Report 8537050-X (Version None)
Quarter: 2012Q3

REPORT INFORMATION
  Report Type: 
  Country: None (occurrence: None)
  Receive Date: 20120725
  Receipt Date: 20120716
  Transmission Date: 20120928
  Serious: Yes (Hospitalization, Other)
  Sender: FDA-Public Use
  Company Number: US-ASTRAZENECA-2012SE50021

PATIENT
  Age: 54 Year
  Sex: Male

DRUGS (2)
  1. SYMBICORT [Suspect]
     Dosage: TOTAL DAILY DOSE: 80/4.5 UG, FREQUENCY UNKNOWN
     Route: 055
  2. ADVAIR DISKUS 100/50 [Concomitant]

REACTIONS (5)
  - HEPATITIS B [None]
  - PULMONARY HYPERTENSION [None]
  - IMMUNE SYSTEM DISORDER [None]
  - IDIOPATHIC THROMBOCYTOPENIC PURPURA [None]
  - BLOOD TEST ABNORMAL [None]
